FAERS Safety Report 7352680-9 (Version None)
Quarter: 2011Q1

REPORT INFORMATION
  Report Type: 
  Country: None (occurrence: None)
  Receive Date: 20110302
  Receipt Date: 20100629
  Transmission Date: 20110831
  Serious: Yes (Hospitalization, Other)
  Sender: FDA-Public Use
  Company Number: 163-21880-09020756

PATIENT
  Age: 64 Year
  Sex: Female

DRUGS (15)
  1. ZOMETA [Concomitant]
  2. COLACE (DOCUSATE SODIUM) [Concomitant]
  3. SENOKOT [Concomitant]
  4. NEXIUM [Concomitant]
  5. REVLIMID [Suspect]
     Indication: MULTIPLE MYELOMA
     Dosage: 25 MG, DAILY X 21 DAYS, PO, 25 MG, DAILY X 21 DAYS, PO
     Route: 048
     Dates: start: 20080517, end: 20090110
  6. REVLIMID [Suspect]
     Indication: MULTIPLE MYELOMA
     Dosage: 25 MG, DAILY X 21 DAYS, PO, 25 MG, DAILY X 21 DAYS, PO
     Route: 048
     Dates: start: 20090116
  7. REVLIMID [Suspect]
  8. MULTIVITAMIN [Concomitant]
  9. BACTRIM DS [Concomitant]
  10. AVANDIA [Concomitant]
  11. ADVAIR DISKUS (SERETIDE MITE) [Concomitant]
  12. COUMADIN [Concomitant]
  13. ZOVIRAX [Concomitant]
  14. DEXAMETHASONE [Concomitant]
  15. FIBERCON (POLYCARBOPHIL CALCIUM) [Concomitant]

REACTIONS (8)
  - HYPERHIDROSIS [None]
  - PANCYTOPENIA [None]
  - PYREXIA [None]
  - PLEURAL EFFUSION [None]
  - CHILLS [None]
  - PIGMENTATION DISORDER [None]
  - BACK PAIN [None]
  - MUSCLE SPASMS [None]
